FAERS Safety Report 13953398 (Version 1)
Quarter: 2017Q3

REPORT INFORMATION
  Report Type: Spontaneous
  Country: US (occurrence: US)
  Receive Date: 20170911
  Receipt Date: 20170911
  Transmission Date: 20171128
  Serious: Yes (Other)
  Sender: FDA-Public Use
  Company Number: US-B.I. PHARMACEUTICALS,INC./RIDGEFIELD-2017-BI-049192

PATIENT
  Sex: Female

DRUGS (2)
  1. COMBIVENT [Suspect]
     Active Substance: ALBUTEROL SULFATE\IPRATROPIUM BROMIDE
     Indication: CHRONIC OBSTRUCTIVE PULMONARY DISEASE
     Dosage: TWICE DAILY;  FORM STRENGTH: 20 MCG / 100 MCG; FORMULATION: INHALATION SPRAY? ADMINISTRATION CORRECT
     Route: 055
     Dates: start: 2000
  2. SYMBICORT [Concomitant]
     Indication: CHRONIC OBSTRUCTIVE PULMONARY DISEASE
     Dosage: TWICE DAILY;  FORM STRENGTH: 160/4.5MG; FORMULATION: INHALATION AEROSOL
     Route: 055

REACTIONS (2)
  - Lung neoplasm malignant [Not Recovered/Not Resolved]
  - Chronic obstructive pulmonary disease [Recovered/Resolved]
